FAERS Safety Report 4873420-9 (Version None)
Quarter: 2006Q1

REPORT INFORMATION
  Report Type: 
  Country: None (occurrence: None)
  Receive Date: 20060105
  Receipt Date: 20051229
  Transmission Date: 20060701
  Serious: Yes (Hospitalization, Other)
  Sender: FDA-Public Use
  Company Number: US-JNJFOC-20041206151

PATIENT
  Sex: Male
  Weight: 62 kg

DRUGS (11)
  1. RISPERDAL [Suspect]
     Route: 048
  2. RISPERDAL [Suspect]
     Dosage: (1 MG TABLET; ONE-HALF TABLET TWICE DAILY)
     Route: 048
  3. RISPERDAL [Suspect]
     Route: 048
  4. RISPERDAL [Suspect]
     Route: 048
  5. RISPERDAL [Suspect]
     Indication: SCHIZOPHRENIFORM DISORDER
     Dosage: (3 MG TABLET; 1.5 TABLETS DAILY)
     Route: 048
  6. LUVOX [Concomitant]
     Dosage: (100 MG TABLET; ONE TABLET IN MORNING AND 0.5 TABLET AT BEDTIME)
     Route: 048
  7. PAXIL [Concomitant]
     Dosage: (STARTED AT 10 MG IN APPROXIMATELY NOV-97)
     Route: 048
  8. PAXIL [Concomitant]
     Dosage: (20 MG TABLET; 3 TABLETS EVERY MORNING)
     Route: 048
  9. PAXIL [Concomitant]
     Route: 048
  10. KLONOPIN [Concomitant]
     Dosage: (1.5 PILLS TWICE DAILY)
     Route: 048
  11. KLONOPIN [Concomitant]
     Dosage: (1 MG TABLET; 1.5 TABLETS TWICE DAILY)
     Route: 048

REACTIONS (3)
  - DIABETES MELLITUS INSULIN-DEPENDENT [None]
  - DIABETIC KETOACIDOSIS [None]
  - MUSCLE RIGIDITY [None]
